FAERS Safety Report 4675033-0 (Version None)
Quarter: 2005Q3

REPORT INFORMATION
  Report Type: 
  Country: None (occurrence: None)
  Receive Date: 20050525
  Receipt Date: 20050513
  Transmission Date: 20060218
  Serious: Yes (Disabling)
  Sender: FDA-Public Use
  Company Number: 200502861

PATIENT
  Age: 44 Year
  Sex: Female

DRUGS (1)
  1. BOTOX COSMETIC [Suspect]
     Indication: SKIN WRINKLING
     Dosage: 30 UNITS PRN IM
     Route: 030
     Dates: start: 20050330

REACTIONS (4)
  - DEAFNESS UNILATERAL [None]
  - DRUG INEFFECTIVE [None]
  - SUDDEN HEARING LOSS [None]
  - TINNITUS [None]
